FAERS Safety Report 9204399 (Version 2)
Quarter: 2015Q2

REPORT INFORMATION
  Report Type: Spontaneous
  Country: US (occurrence: US)
  Receive Date: 20130402
  Receipt Date: 20150629
  Transmission Date: 20150821
  Serious: Yes (Death)
  Sender: FDA-Public Use
  Company Number: US-PFIZER INC-2013101964

PATIENT
  Age: 70 Year
  Sex: Female

DRUGS (1)
  1. CHLORAMPHENICOL SODIUM SUCCINATE. [Suspect]
     Active Substance: CHLORAMPHENICOL SODIUM SUCCINATE
     Dosage: 20 MG/DAY
     Route: 042

REACTIONS (2)
  - Accidental overdose [Fatal]
  - Product label confusion [Fatal]
